FAERS Safety Report 6193313-7 (Version None)
Quarter: 2009Q2

REPORT INFORMATION
  Report Type: 
  Country: None (occurrence: None)
  Receive Date: 20090518
  Receipt Date: 20090511
  Transmission Date: 20091009
  Serious: Yes (Other)
  Sender: FDA-Public Use
  Company Number: PHHY2009BR18037

PATIENT
  Sex: Male

DRUGS (3)
  1. VOLTAREN [Suspect]
     Indication: GOUT
     Dosage: 100 MG DAILY
     Route: 048
     Dates: start: 20030101
  2. VOLTAREN [Suspect]
     Dosage: 50 MG DAILY
     Route: 048
  3. ZYLORIC [Concomitant]
     Dosage: 2 TABLET PER DAY
     Route: 048

REACTIONS (1)
  - DIABETES MELLITUS [None]
